FAERS Safety Report 5474403-0 (Version None)
Quarter: 2007Q3

REPORT INFORMATION
  Report Type: 
  Country: None (occurrence: None)
  Receive Date: 20070904
  Receipt Date: 20070622
  Transmission Date: 20080115
  Serious: Yes (Hospitalization)
  Sender: FDA-Public Use
  Company Number: 158116USA

PATIENT
  Age: 17 Year
  Sex: Male

DRUGS (1)
  1. AZITHROMYCIN [Suspect]
     Indication: BRONCHITIS
     Dosage: (250 MG), ORAL
     Route: 048
     Dates: start: 20070129, end: 20070202

REACTIONS (2)
  - MYCOPLASMA INFECTION [None]
  - STEVENS-JOHNSON SYNDROME [None]
